FAERS Safety Report 9948399 (Version 2)
Quarter: 2014Q1

REPORT INFORMATION
  Report Type: Report from Study
  Country: US (occurrence: US)
  Receive Date: 20140303
  Receipt Date: 20140303
  Transmission Date: 20141002
  Serious: No
  Sender: FDA-Public Use
  Company Number: US-ABBVIE-12P-163-1013544-00

PATIENT
  Age: 45 Year
  Sex: Female

DRUGS (9)
  1. HUMIRA [Suspect]
     Indication: COLITIS ULCERATIVE
     Dosage: LOADING DOSE
     Dates: start: 20121112, end: 20121112
  2. HUMIRA [Suspect]
  3. LIALDA [Concomitant]
     Indication: COLITIS
  4. ZYRTEC [Concomitant]
     Indication: HYPERSENSITIVITY
  5. FLUTICASONE [Concomitant]
     Indication: HYPERSENSITIVITY
     Dosage: 2 SPRAYS EACH NOSTRIL DAILY AT BEDTIME
     Route: 045
  6. GUAIFENESIN [Concomitant]
     Indication: PRODUCT USED FOR UNKNOWN INDICATION
  7. MUCINEX [Concomitant]
     Indication: HYPERSENSITIVITY
  8. TYLENOL [Concomitant]
     Indication: HEADACHE
  9. TYLENOL [Concomitant]
     Indication: PAIN

REACTIONS (13)
  - Increased upper airway secretion [Not Recovered/Not Resolved]
  - Nasopharyngitis [Not Recovered/Not Resolved]
  - Poor quality sleep [Not Recovered/Not Resolved]
  - Neck pain [Not Recovered/Not Resolved]
  - Fatigue [Unknown]
  - Headache [Unknown]
  - Abdominal pain upper [Unknown]
  - Sinusitis [Not Recovered/Not Resolved]
  - Bronchitis [Recovered/Resolved]
  - Sinusitis [Unknown]
  - Sinusitis [Unknown]
  - Cellulitis [Unknown]
  - Colitis ulcerative [Unknown]
